FAERS Safety Report 8488799-9 (Version None)
Quarter: 2012Q2

REPORT INFORMATION
  Report Type: 
  Country: None (occurrence: None)
  Receive Date: 20120626
  Receipt Date: 20120611
  Transmission Date: 20120825
  Serious: Yes (Hospitalization)
  Sender: FDA-Public Use
  Company Number: TPA2012A03968

PATIENT
  Age: 85 Year
  Sex: Female

DRUGS (12)
  1. ACETAMINOPHEN AND TRAMADOL HCL [Suspect]
     Dosage: ORAL
     Route: 048
     Dates: start: 20111001, end: 20111123
  2. AMYCOR (BIFONAZOLE) [Concomitant]
  3. COLCHIMAX (COLCHICINE, DICYCLOVERINE HYDROCHLORIDE) [Suspect]
     Indication: GOUT
     Dosage: ORAL
     Route: 048
     Dates: start: 20111113, end: 20111117
  4. ACETAMINOPHEN [Suspect]
  5. TAMAKAN (GINKGO BILOBA EXTRACT) [Suspect]
     Indication: PRODUCT USED FOR UNKNOWN INDICATION
     Dosage: ORAL
     Route: 048
     Dates: end: 20011123
  6. LANTUS [Concomitant]
  7. TIMOLOL MALEATE [Concomitant]
  8. DAKTARIN (MICONAZOLE) [Concomitant]
  9. AMLODIPINE [Concomitant]
  10. ADENURIC (FEBUXOSTAT) [Suspect]
     Indication: GOUT
     Dosage: 80 MG (80 MG,1 IN 1 D) ORAL
     Route: 048
     Dates: start: 20111113, end: 20111117
  11. IRBESARTAN AND HYDROCHLOROTHIAZIDE [Suspect]
     Indication: HYPERTENSION
     Dosage: ORAL
     Route: 048
     Dates: end: 20111123
  12. METFORMIN HYDROCHLORIDE [Concomitant]

REACTIONS (2)
  - RASH PUSTULAR [None]
  - SKIN EXFOLIATION [None]
